FAERS Safety Report 14745785 (Version 1)
Quarter: 2018Q2

REPORT INFORMATION
  Report Type: Spontaneous
  Country: US (occurrence: US)
  Receive Date: 20180411
  Receipt Date: 20180411
  Transmission Date: 20180711
  Serious: No
  Sender: FDA-Public Use
  Company Number: US-GLAXOSMITHKLINE-US2018058890

PATIENT
  Age: 72 Year
  Sex: Female

DRUGS (10)
  1. VOLTAREN [Concomitant]
     Active Substance: DICLOFENAC SODIUM
  2. NEBULIZED ALBUTEROL [Concomitant]
     Active Substance: ALBUTEROL
  3. ROSUVASTATIN. [Concomitant]
     Active Substance: ROSUVASTATIN
  4. INCRUSE ELLIPTA [Suspect]
     Active Substance: UMECLIDINIUM BROMIDE
     Indication: CHRONIC OBSTRUCTIVE PULMONARY DISEASE
     Dosage: 1 PUFF(S), QD
     Route: 055
     Dates: start: 20180405
  5. ADVAIR DISKUS [Concomitant]
     Active Substance: FLUTICASONE PROPIONATE\SALMETEROL XINAFOATE
  6. VENTOLIN HFA [Concomitant]
     Active Substance: ALBUTEROL SULFATE
  7. FUROSEMIDE. [Concomitant]
     Active Substance: FUROSEMIDE
  8. LISINOPRIL. [Concomitant]
     Active Substance: LISINOPRIL
  9. ELIQUIS [Concomitant]
     Active Substance: APIXABAN
  10. FLUTICASONE PROPIONATE NASAL [Concomitant]
     Active Substance: FLUTICASONE PROPIONATE

REACTIONS (2)
  - Dyspnoea [Recovered/Resolved]
  - Drug ineffective [Recovered/Resolved]

NARRATIVE: CASE EVENT DATE: 20180405
